FAERS Safety Report 14687235 (Version 5)
Quarter: 2020Q4

REPORT INFORMATION
  Report Type: Report from Study
  Country: US (occurrence: US)
  Receive Date: 20180328
  Receipt Date: 20201014
  Transmission Date: 20210113
  Serious: Yes (Hospitalization)
  Sender: FDA-Public Use
  Company Number: PHEH2018US010888

PATIENT
  Age: 23 Year
  Sex: Male
  Weight: 98.6 kg

DRUGS (3)
  1. DEXAMETHASONE. [Concomitant]
     Active Substance: DEXAMETHASONE
     Dosage: 10 MG
     Route: 065
     Dates: start: 20180412
  2. DEXAMETHASONE. [Concomitant]
     Active Substance: DEXAMETHASONE
     Indication: PRODUCT USED FOR UNKNOWN INDICATION
     Dosage: 20 MG, Q12H
     Route: 065
     Dates: start: 20180403, end: 20180407
  3. KYMRIAH [Suspect]
     Active Substance: TISAGENLECLEUCEL
     Indication: ACUTE LYMPHOCYTIC LEUKAEMIA RECURRENT
     Dosage: .4X10^6 CART VIABLE CELLS/ KG, ONCE/SINGLE
     Route: 042
     Dates: start: 20180305

REACTIONS (9)
  - Asthenia [Unknown]
  - Pyrexia [Unknown]
  - Mania [Unknown]
  - Encephalopathy [Unknown]
  - Personality change [Unknown]
  - Neurotoxicity [Recovered/Resolved]
  - Cognitive disorder [Unknown]
  - Cytokine release syndrome [Recovered/Resolved]
  - Disturbance in attention [Unknown]

NARRATIVE: CASE EVENT DATE: 20180312
